FAERS Safety Report 14970158 (Version 1)
Quarter: 2018Q2

REPORT INFORMATION
  Report Type: Spontaneous
  Country: US (occurrence: US)
  Receive Date: 20180513
  Receipt Date: 20180513
  Transmission Date: 20180711
  Serious: Yes (Other)
  Sender: FDA-Public Use
  Company Number: None

PATIENT
  Age: 45 Year
  Sex: Female
  Weight: 114.75 kg

DRUGS (1)
  1. TRULICITY [Suspect]
     Active Substance: DULAGLUTIDE
     Indication: DIABETES MELLITUS
     Dosage: ?          QUANTITY:1 PEN;OTHER FREQUENCY:EVERY WEEK;OTHER ROUTE:INTRAMUSCULARLY?
     Route: 030
     Dates: start: 20170517, end: 20170826

REACTIONS (4)
  - Injection site mass [None]
  - Hypersensitivity [None]
  - Injection site discolouration [None]
  - Pruritus [None]

NARRATIVE: CASE EVENT DATE: 20170727
